FAERS Safety Report 18474072 (Version 1)
Quarter: 2020Q4

REPORT INFORMATION
  Report Type: Spontaneous
  Country: IN (occurrence: IN)
  Receive Date: 20201106
  Receipt Date: 20201106
  Transmission Date: 20210114
  Serious: Yes (Death)
  Sender: FDA-Public Use
  Company Number: IN-PFIZER INC-2020353662

PATIENT
  Age: 78 Year
  Sex: Female

DRUGS (1)
  1. PALBACE [Suspect]
     Active Substance: PALBOCICLIB
     Indication: BREAST CANCER METASTATIC
     Dosage: 125 MG, CYCLIC (ONCE A DAY; FOR 3 WEEKS THEN 1WEEK REST-TO CONTINUE FOR 6 MONTH)
     Route: 048
     Dates: start: 20171226

REACTIONS (1)
  - Death [Fatal]
